FAERS Safety Report 24845391 (Version 1)
Quarter: 2025Q1

REPORT INFORMATION
  Report Type: Spontaneous
  Country: US (occurrence: US)
  Receive Date: 20250115
  Receipt Date: 20250115
  Transmission Date: 20250409
  Serious: No
  Sender: JOHNSON AND JOHNSON
  Company Number: US-JNJFOC-20250131844

PATIENT
  Sex: Female

DRUGS (1)
  1. XARELTO [Suspect]
     Active Substance: RIVAROXABAN
     Indication: Product used for unknown indication
     Route: 048

REACTIONS (6)
  - Cystitis [Not Recovered/Not Resolved]
  - Rash pruritic [Not Recovered/Not Resolved]
  - Epistaxis [Not Recovered/Not Resolved]
  - Joint swelling [Not Recovered/Not Resolved]
  - Pain in extremity [Not Recovered/Not Resolved]
  - Eczema weeping [Not Recovered/Not Resolved]
